FAERS Safety Report 9596658 (Version 1)
Quarter: 2013Q4

REPORT INFORMATION
  Report Type: Spontaneous
  Country: US (occurrence: US)
  Receive Date: 20131004
  Receipt Date: 20131004
  Transmission Date: 20140711
  Serious: Yes (Other)
  Sender: FDA-Public Use
  Company Number: US-ROXANE LABORATORIES, INC.-2013-RO-01630RO

PATIENT
  Age: 54 Year
  Sex: Female
  Weight: 83 kg

DRUGS (13)
  1. LITHIUM CARBONATE [Suspect]
     Indication: BIPOLAR DISORDER
     Dates: start: 20130402, end: 20130409
  2. LITHIUM CARBONATE [Suspect]
     Dates: start: 20130409, end: 20130411
  3. LITHIUM CARBONATE [Suspect]
     Dates: start: 20130411, end: 20130411
  4. LATUDA [Suspect]
     Indication: BIPOLAR DISORDER
     Dosage: 40 MG
     Route: 048
     Dates: start: 20130402, end: 20130409
  5. LATUDA [Suspect]
     Dosage: 80 MG
     Route: 048
     Dates: start: 20130409
  6. NEURONTIN [Concomitant]
  7. FLUVOXAMINE [Concomitant]
  8. BUSPIRONE [Concomitant]
  9. PRAMIPEXOLE [Concomitant]
  10. SULFAMETHOXAZOLE [Concomitant]
  11. HYDROCODONE [Concomitant]
  12. MULTIVITAMINS, PLAIN [Concomitant]
  13. BENADRYL [Concomitant]

REACTIONS (1)
  - Tremor [Not Recovered/Not Resolved]
